FAERS Safety Report 17620849 (Version 1)
Quarter: 2020Q2

REPORT INFORMATION
  Report Type: Spontaneous
  Country: US (occurrence: US)
  Receive Date: 20200401
  Receipt Date: 20200401
  Transmission Date: 20200713
  Serious: No
  Sender: FDA-Public Use
  Company Number: None

PATIENT
  Age: 59 Year
  Sex: Male
  Weight: 67.13 kg

DRUGS (6)
  1. LOSARTAN. [Suspect]
     Active Substance: LOSARTAN
  2. VALSARTAN. [Suspect]
     Active Substance: VALSARTAN
  3. LISINOPRIL. [Suspect]
     Active Substance: LISINOPRIL
  4. VERAPAMIL [Suspect]
     Active Substance: VERAPAMIL HYDROCHLORIDE
  5. OLMESARTAN [Suspect]
     Active Substance: OLMESARTAN
  6. ATENOLOL. [Suspect]
     Active Substance: ATENOLOL

REACTIONS (1)
  - Drug ineffective [None]
